FAERS Safety Report 4319975-4 (Version None)
Quarter: 2004Q1

REPORT INFORMATION
  Report Type: 
  Country: None (occurrence: None)
  Receive Date: 20040317
  Receipt Date: 20040301
  Transmission Date: 20041129
  Serious: Yes (Death, Hospitalization)
  Sender: FDA-Public Use
  Company Number: A-US2004-04700

PATIENT
  Age: 68 Year
  Sex: Female

DRUGS (1)
  1. TRACLEER [Suspect]
     Indication: PULMONARY HYPERTENSION
     Dosage: 62.5 MG, BID,ORAL
     Route: 048
     Dates: start: 20030721, end: 20030801

REACTIONS (3)
  - CARDIO-RESPIRATORY ARREST [None]
  - PNEUMOTHORAX [None]
  - RESPIRATORY FAILURE [None]
